FAERS Safety Report 8385694-0 (Version None)
Quarter: 2012Q2

REPORT INFORMATION
  Report Type: 
  Country: None (occurrence: None)
  Receive Date: 20120525
  Receipt Date: 20120521
  Transmission Date: 20120825
  Serious: No
  Sender: FDA-Public Use
  Company Number: US-PFIZER INC-2012123360

PATIENT
  Sex: Female

DRUGS (2)
  1. INLYTA [Suspect]
     Dosage: UNK, 2X/DAY
     Dates: start: 20120515
  2. SUTENT [Concomitant]
     Dosage: UNK
     Route: 048

REACTIONS (4)
  - PAIN [None]
  - MALAISE [None]
  - BLOOD PRESSURE INCREASED [None]
  - DYSPNOEA [None]
